FAERS Safety Report 5256014-5 (Version None)
Quarter: 2007Q1

REPORT INFORMATION
  Report Type: 
  Country: None (occurrence: None)
  Receive Date: 20070306
  Receipt Date: 20070227
  Transmission Date: 20070707
  Serious: Yes (Hospitalization, Other)
  Sender: FDA-Public Use
  Company Number: GB-JNJFOC-20070300007

PATIENT
  Sex: Female
  Weight: 92 kg

DRUGS (6)
  1. REMICADE [Suspect]
     Indication: RHEUMATOID ARTHRITIS
     Route: 042
  2. PREDNISOLONE [Concomitant]
     Route: 065
  3. ATENOLOL [Concomitant]
     Route: 065
  4. LOMOTIL [Concomitant]
     Route: 065
  5. LOSARTAN POTASSIUM [Concomitant]
     Route: 065
  6. PROTHIADEN [Concomitant]
     Route: 065

REACTIONS (1)
  - NEPHROLITHIASIS [None]
